FAERS Safety Report 26185809 (Version 1)
Quarter: 2025Q4

REPORT INFORMATION
  Report Type: Spontaneous
  Country: GB (occurrence: GB)
  Receive Date: 20251222
  Receipt Date: 20251222
  Transmission Date: 20260118
  Serious: Yes (Other)
  Sender: TEVA
  Company Number: None

PATIENT
  Age: 50 Year
  Sex: Female
  Weight: 74 kg

DRUGS (10)
  1. DOXYCYCLINE [Suspect]
     Active Substance: DOXYCYCLINE
     Indication: Ill-defined disorder
     Route: 065
  2. LYMECYCLINE [Concomitant]
     Active Substance: LYMECYCLINE
     Indication: Ill-defined disorder
     Dates: start: 20251015
  3. MEBEVERINE HYDROCHLORIDE [Concomitant]
     Active Substance: MEBEVERINE HYDROCHLORIDE
     Indication: Ill-defined disorder
     Dosage: TIME INTERVAL: AS NECESSARY: 3 TIMES/DAY
     Dates: start: 20250730
  4. BECLOMETHASONE\FORMOTEROL [Concomitant]
     Active Substance: BECLOMETHASONE\FORMOTEROL
     Indication: Ill-defined disorder
     Dosage: PUFF
     Dates: start: 20250730
  5. BENZOYL PEROXIDE [Concomitant]
     Active Substance: BENZOYL PEROXIDE
     Indication: Ill-defined disorder
     Dosage: USE AS DIRECTED TO FACE
     Dates: start: 20251015, end: 20251112
  6. CITALOPRAM [Concomitant]
     Active Substance: CITALOPRAM
     Indication: Ill-defined disorder
     Dates: start: 20250730
  7. WEGOVY [Concomitant]
     Active Substance: SEMAGLUTIDE
     Indication: Ill-defined disorder
     Dosage: ISSUED BY MEDEXPRESS
     Dates: start: 20250929
  8. OMEPRAZOLE [Concomitant]
     Active Substance: OMEPRAZOLE
     Indication: Ill-defined disorder
     Dates: start: 20250730
  9. ALBUTEROL [Concomitant]
     Active Substance: ALBUTEROL
     Indication: Ill-defined disorder
     Dosage: TIME INTERVAL: AS NECESSARY: RESPIRATORY (INHALATION) UP TO 4 TIMES A DAY TO...
     Dates: start: 20250730
  10. CHLORHEXIDINE [Concomitant]
     Active Substance: CHLORHEXIDINE
     Indication: Ill-defined disorder
     Dosage: USE AS DIRECTED, GLUCONATE
     Dates: start: 20251015, end: 20251112

REACTIONS (2)
  - Dizziness [Recovered/Resolved]
  - Panic attack [Unknown]
